FAERS Safety Report 7184562-X (Version None)
Quarter: 2010Q4

REPORT INFORMATION
  Report Type: 
  Country: None (occurrence: None)
  Receive Date: 20101222
  Receipt Date: 20101213
  Transmission Date: 20110411
  Serious: Yes (Hospitalization)
  Sender: FDA-Public Use
  Company Number: FR-ASTRAZENECA-2010SE59378

PATIENT
  Age: 20214 Day
  Sex: Male

DRUGS (7)
  1. NEXIUM [Suspect]
     Route: 048
  2. AVLOCARDYL [Suspect]
     Route: 048
  3. LEVEMIR [Suspect]
  4. HUMALOG [Suspect]
  5. EZETIMIBE/SIMVASTATIN [Suspect]
     Route: 048
  6. ACETAMINOPHEN W/ PROPOXYPHENE HCL [Suspect]
     Dosage: FOR 4-5 DAYS
     Route: 048
  7. KARDEGIC [Concomitant]

REACTIONS (2)
  - ECZEMA [None]
  - RASH MACULO-PAPULAR [None]
